FAERS Safety Report 13366957 (Version 1)
Quarter: 2017Q1

REPORT INFORMATION
  Report Type: Spontaneous
  Country: US (occurrence: US)
  Receive Date: 20170323
  Receipt Date: 20170323
  Transmission Date: 20170429
  Serious: Yes (Hospitalization, Disabling)
  Sender: FDA-Public Use
  Company Number: None

PATIENT
  Age: 32 Year
  Sex: Female
  Weight: 81 kg

DRUGS (8)
  1. MAGNESIUM CITRATE. [Concomitant]
     Active Substance: MAGNESIUM CITRATE
  2. ELEMENAL NUTRITION SHAKE [Concomitant]
  3. METHYLDOPA. [Concomitant]
     Active Substance: METHYLDOPA
  4. PROBIOTIC [Concomitant]
     Active Substance: PROBIOTICS NOS
  5. OTC DIURETIC [Suspect]
     Active Substance: UNSPECIFIED INGREDIENT
     Indication: ABDOMINAL DISTENSION
  6. LIQUID IRON [Concomitant]
  7. CIPROFLOXACIN. [Suspect]
     Active Substance: CIPROFLOXACIN
     Indication: COLITIS
  8. VITAMIN D3 [Concomitant]
     Active Substance: CHOLECALCIFEROL

REACTIONS (15)
  - Respiratory tract infection viral [None]
  - Rectal haemorrhage [None]
  - Feeling abnormal [None]
  - Neuralgia [None]
  - Seizure like phenomena [None]
  - Arthralgia [None]
  - Dyspnoea [None]
  - Hypoaesthesia [None]
  - Hyperthyroidism [None]
  - Activities of daily living impaired [None]
  - Migraine with aura [None]
  - Diplopia [None]
  - Postural orthostatic tachycardia syndrome [None]
  - Myalgia [None]
  - Condition aggravated [None]

NARRATIVE: CASE EVENT DATE: 20151001
